FAERS Safety Report 8922646 (Version 1)
Quarter: 2012Q4

REPORT INFORMATION
  Report Type: 
  Country: SE (occurrence: SE)
  Receive Date: 20121123
  Receipt Date: 20121123
  Transmission Date: 20130627
  Serious: Yes (Hospitalization)
  Sender: FDA-Public Use
  Company Number: SE-PFIZER INC-2012290491

PATIENT
  Age: 33 Year
  Sex: Female
  Weight: 61 kg

DRUGS (3)
  1. GENOTROPIN [Suspect]
     Dosage: 1.0 mg, 1x/day, 7 injections/week
     Route: 058
     Dates: start: 20020327
  2. HUMULINE NPH [Concomitant]
     Indication: DIABETES MELLITUS NOS
     Dosage: UNK
     Dates: start: 19950701
  3. LEVAXIN [Concomitant]
     Indication: HYPOTHYROIDISM
     Dosage: UNK
     Dates: start: 19930701

REACTIONS (1)
  - Blood disorder [Unknown]
